FAERS Safety Report 19949559 (Version 1)
Quarter: 2021Q4

REPORT INFORMATION
  Report Type: Spontaneous
  Country: US (occurrence: US)
  Receive Date: 20211012
  Receipt Date: 20211012
  Transmission Date: 20220303
  Serious: Yes (Other)
  Sender: FDA-Public Use
  Company Number: None

PATIENT
  Age: 75 Year
  Sex: Male
  Weight: 83.25 kg

DRUGS (1)
  1. PRIVIGEN [Suspect]
     Active Substance: HUMAN IMMUNOGLOBULIN G
     Indication: Chronic inflammatory demyelinating polyradiculoneuropathy
     Dosage: ?          OTHER FREQUENCY:2DQ8W;
     Route: 042

REACTIONS (4)
  - Rash [None]
  - Pruritus [None]
  - Blister [None]
  - Infusion related reaction [None]

NARRATIVE: CASE EVENT DATE: 20211007
